FAERS Safety Report 8515908-5 (Version None)
Quarter: 2012Q3

REPORT INFORMATION
  Report Type: 
  Country: None (occurrence: None)
  Receive Date: 20120717
  Receipt Date: 20120716
  Transmission Date: 20120928
  Serious: Yes (Hospitalization, Other)
  Sender: FDA-Public Use
  Company Number: PHHY2009CA42642

PATIENT
  Sex: Female

DRUGS (8)
  1. RADIOTHERAPY [Concomitant]
  2. SANDOSTATIN LAR [Suspect]
     Dosage: 30 MG, EVERY FOUR WEEKS
     Route: 030
  3. SANDOSTATIN LAR [Suspect]
     Dosage: 30 MG, QMO
     Route: 030
  4. CHEMOTHERAPEUTICS [Concomitant]
     Dates: start: 20120401
  5. SANDOSTATIN LAR [Suspect]
     Dosage: 20 MG EVERY 4 WEEKS
     Route: 030
  6. SANDOSTATIN LAR [Suspect]
     Dosage: 30 MG EVERY 4 WEEKS
     Route: 030
  7. SANDOSTATIN LAR [Suspect]
     Indication: CARCINOID TUMOUR
     Dosage: 30 MG ONCE A MONTH
     Route: 030
     Dates: start: 20090604, end: 20100118
  8. MORPHINE [Concomitant]

REACTIONS (21)
  - SALMONELLOSIS [None]
  - METASTASES TO SPINE [None]
  - MALAISE [None]
  - WEIGHT DECREASED [None]
  - DRUG INEFFECTIVE [None]
  - INSOMNIA [None]
  - BLOOD PRESSURE DIASTOLIC DECREASED [None]
  - BLOOD PRESSURE SYSTOLIC INCREASED [None]
  - BACK PAIN [None]
  - MUSCULOSKELETAL CHEST PAIN [None]
  - FATIGUE [None]
  - INJECTION SITE PAIN [None]
  - HUNGER [None]
  - FEELING ABNORMAL [None]
  - DECREASED APPETITE [None]
  - NEOPLASM MALIGNANT [None]
  - HYPERHIDROSIS [None]
  - DIARRHOEA [None]
  - HEART RATE INCREASED [None]
  - ABDOMINAL PAIN [None]
  - VOMITING [None]
